FAERS Safety Report 5100047-6 (Version None)
Quarter: 2006Q3

REPORT INFORMATION
  Report Type: 
  Country: None (occurrence: None)
  Receive Date: 20060906
  Receipt Date: 20060824
  Transmission Date: 20061208
  Serious: Yes (Other)
  Sender: FDA-Public Use
  Company Number: 2006070615

PATIENT
  Age: 58 Year
  Sex: Male
  Weight: 81.6475 kg

DRUGS (4)
  1. ANTIVERT [Suspect]
     Indication: NEURITIS
     Dates: start: 20060501
  2. LYRICA [Suspect]
     Indication: SCIATICA
     Dosage: 50 MG (50 MG, 1 IN 1 D)
     Dates: start: 20060101, end: 20060101
  3. ALL OTHER THERAPEUTIC PRODUCTS [Concomitant]
  4. TYLENOL W/ CODEINE [Concomitant]

REACTIONS (8)
  - AMNESIA [None]
  - DIZZINESS [None]
  - MEMORY IMPAIRMENT [None]
  - NAUSEA [None]
  - NEURITIS [None]
  - TINNITUS [None]
  - VERTIGO [None]
  - VESTIBULAR DISORDER [None]
